FAERS Safety Report 5937692-1 (Version None)
Quarter: 2008Q4

REPORT INFORMATION
  Report Type: 
  Country: None (occurrence: None)
  Receive Date: 20081031
  Receipt Date: 20081024
  Transmission Date: 20090506
  Serious: Yes (Hospitalization)
  Sender: FDA-Public Use
  Company Number: FR-MERCK-0810FRA00036

PATIENT
  Age: 41 Year
  Sex: Male

DRUGS (6)
  1. ISENTRESS [Suspect]
     Indication: HIV INFECTION
     Route: 048
     Dates: start: 20080825, end: 20080925
  2. ABACAVIR SULFATE AND LAMIVUDINE [Suspect]
     Indication: HIV INFECTION
     Route: 048
     Dates: start: 20080818, end: 20080925
  3. SULFAMETHOXAZOLE AND TRIMETHOPRIM [Concomitant]
     Indication: PROPHYLAXIS
     Route: 048
  4. OMEPRAZOLE [Concomitant]
     Route: 048
  5. LEUCOVORIN CALCIUM [Concomitant]
     Route: 048
  6. AMPHOTERICIN B [Concomitant]
     Route: 048

REACTIONS (2)
  - EOSINOPHILIA [None]
  - RASH [None]
